FAERS Safety Report 5801520-5 (Version None)
Quarter: 2008Q3

REPORT INFORMATION
  Report Type: 
  Country: None (occurrence: None)
  Receive Date: 20080707
  Receipt Date: 20080630
  Transmission Date: 20090109
  Serious: Yes (Other)
  Sender: FDA-Public Use
  Company Number: BR-JNJFOC-20080700139

PATIENT
  Age: 4 Month
  Sex: Female
  Weight: 6 kg

DRUGS (2)
  1. TYLENOL (CAPLET) [Suspect]
  2. TYLENOL (CAPLET) [Suspect]
     Indication: ABDOMINAL PAIN

REACTIONS (1)
  - HAEMATOCHEZIA [None]
